FAERS Safety Report 5019080-8 (Version None)
Quarter: 2006Q2

REPORT INFORMATION
  Report Type: 
  Country: None (occurrence: None)
  Receive Date: 20060606
  Receipt Date: 20060530
  Transmission Date: 20061013
  Serious: Yes (Congenital Anomaly)
  Sender: FDA-Public Use
  Company Number: GB-GILEAD-2006-0009654

PATIENT
  Sex: Female

DRUGS (2)
  1. VIREAD [Suspect]
     Route: 064
  2. REYATAZ [Concomitant]

REACTIONS (2)
  - GINGIVAL HYPERPIGMENTATION [None]
  - TOOTH DISCOLOURATION [None]
